FAERS Safety Report 11127680 (Version 2)
Quarter: 2015Q3

REPORT INFORMATION
  Report Type: Report from Study
  Country: US (occurrence: US)
  Receive Date: 20150521
  Receipt Date: 20150706
  Transmission Date: 20151125
  Serious: Yes (Hospitalization, Other)
  Sender: FDA-Public Use
  Company Number: US-SA-2015SA067520

PATIENT
  Age: 23 Year
  Sex: Male

DRUGS (3)
  1. LANTUS [Suspect]
     Active Substance: INSULIN GLARGINE
     Indication: DIABETES MELLITUS
     Dosage: DOSE:100 UNIT(S)
     Route: 058
     Dates: start: 20020106
  2. APIDRA [Suspect]
     Active Substance: INSULIN GLULISINE
     Indication: DIABETES MELLITUS
     Dosage: DOSE:25 UNIT(S)
     Route: 058
     Dates: start: 20020106
  3. APIDRA [Suspect]
     Active Substance: INSULIN GLULISINE
     Indication: DIABETES MELLITUS
     Dosage: 6 TIMES PER DAY DOSE:75 UNIT(S)
     Route: 058

REACTIONS (5)
  - Localised infection [Unknown]
  - Cyst [Unknown]
  - Neuralgia [Unknown]
  - Drug administration error [Unknown]
  - Diabetic coma [Unknown]

NARRATIVE: CASE EVENT DATE: 20020106
